FAERS Safety Report 16181089 (Version 7)
Quarter: 2019Q4

REPORT INFORMATION
  Report Type: Spontaneous
  Country: US (occurrence: US)
  Receive Date: 20190410
  Receipt Date: 20191203
  Transmission Date: 20200122
  Serious: Yes (Other)
  Sender: FDA-Public Use
  Company Number: US-ALLERGAN-1915407US

PATIENT
  Sex: Female
  Weight: 72.57 kg

DRUGS (4)
  1. RETAINE [Concomitant]
     Active Substance: HYPROMELLOSE 2910 (4000 MPA.S)
     Indication: PRODUCT USED FOR UNKNOWN INDICATION
     Dosage: UNK
     Route: 065
  2. AQUAPHOR [Concomitant]
     Active Substance: PETROLATUM
     Indication: LACRIMATION DISORDER
  3. FLUOROMETHOLONE, 0.1% [Suspect]
     Active Substance: FLUOROMETHOLONE
     Indication: EYE INFLAMMATION
     Dosage: 1 GTT, BID
     Dates: start: 20181211
  4. FLUOROMETHOLONE, 0.1% [Suspect]
     Active Substance: FLUOROMETHOLONE
     Dosage: 1 GTT, BID
     Dates: start: 201901

REACTIONS (7)
  - Eye disorder [Unknown]
  - Condition aggravated [Unknown]
  - Eye pain [Unknown]
  - Headache [Unknown]
  - Drug ineffective [Unknown]
  - Cataract [Not Recovered/Not Resolved]
  - Visual impairment [Unknown]

NARRATIVE: CASE EVENT DATE: 201812
